FAERS Safety Report 12717883 (Version 2)
Quarter: 2016Q3

REPORT INFORMATION
  Report Type: Report from Study
  Country: LB (occurrence: LB)
  Receive Date: 20160906
  Receipt Date: 20160917
  Transmission Date: 20161109
  Serious: Yes (Hospitalization, Other)
  Sender: FDA-Public Use
  Company Number: PHHY2016LB119330

PATIENT
  Age: 53 Year
  Sex: Female

DRUGS (1)
  1. EXJADE [Suspect]
     Active Substance: DEFERASIROX
     Indication: THALASSAEMIA
     Dosage: 1000 MG, QD (2 TABS OF 500MG DAILY)
     Route: 048

REACTIONS (7)
  - Vomiting [Unknown]
  - Urine output increased [Unknown]
  - Chromaturia [Unknown]
  - Renal cyst [Not Recovered/Not Resolved]
  - Cough [Unknown]
  - Lung infection [Recovering/Resolving]
  - Pyrexia [Unknown]

NARRATIVE: CASE EVENT DATE: 201607
